FAERS Safety Report 25453946 (Version 2)
Quarter: 2025Q3

REPORT INFORMATION
  Report Type: Spontaneous
  Country: MX (occurrence: MX)
  Receive Date: 20250619
  Receipt Date: 20250902
  Transmission Date: 20251020
  Serious: Yes (Other)
  Sender: NOVO NORDISK
  Company Number: MX-NOVOPROD-1457781

PATIENT
  Sex: Male

DRUGS (4)
  1. WEGOVY [Suspect]
     Active Substance: SEMAGLUTIDE
     Indication: Overweight
  2. WEGOVY [Suspect]
     Active Substance: SEMAGLUTIDE
     Indication: Diabetes mellitus management
  3. WEGOVY [Suspect]
     Active Substance: SEMAGLUTIDE
     Indication: Overweight
  4. WEGOVY [Suspect]
     Active Substance: SEMAGLUTIDE
     Indication: Diabetes mellitus management

REACTIONS (4)
  - Pyrexia [Not Recovered/Not Resolved]
  - Thrombocytopenia [Unknown]
  - Leukopenia [Unknown]
  - Gastrointestinal inflammation [Unknown]
